FAERS Safety Report 12810657 (Version 4)
Quarter: 2020Q1

REPORT INFORMATION
  Report Type: Spontaneous
  Country: US (occurrence: US)
  Receive Date: 20161005
  Receipt Date: 20200127
  Transmission Date: 20200409
  Serious: Yes (Life-Threatening, Hospitalization, Other)
  Sender: FDA-Public Use
  Company Number: US-AUROBINDO-AUR-APL-2016-11968

PATIENT
  Age: 37 Year
  Sex: Male
  Weight: 131.5 kg

DRUGS (5)
  1. VENLAFAXINE [Suspect]
     Active Substance: VENLAFAXINE HYDROCHLORIDE
     Dosage: 150 MG, TWO TIMES A DAY
     Route: 065
     Dates: start: 2009, end: 2013
  2. BUSPIRONE [Concomitant]
     Active Substance: BUSPIRONE HYDROCHLORIDE
     Indication: PRODUCT USED FOR UNKNOWN INDICATION
     Dosage: 15 MG, TWO TIMES A DAY
     Route: 065
     Dates: start: 2007
  3. BUSPIRONE [Concomitant]
     Active Substance: BUSPIRONE HYDROCHLORIDE
     Dosage: 15 MG, TWO TIMES A DAY
     Route: 065
     Dates: start: 2009
  4. VENLAFAXINE [Suspect]
     Active Substance: VENLAFAXINE HYDROCHLORIDE
     Indication: PRODUCT USED FOR UNKNOWN INDICATION
     Dosage: 150 MG, TWO TIMES A DAY
     Route: 065
     Dates: start: 2007
  5. AZITHROMYCIN ANHYDROUS. [Concomitant]
     Active Substance: AZITHROMYCIN ANHYDROUS
     Indication: PNEUMONIA
     Dosage: 5-DAY COURSE
     Route: 065

REACTIONS (9)
  - Cardiac failure acute [Recovered/Resolved]
  - Pneumonitis [Recovered/Resolved]
  - Congestive cardiomyopathy [Recovered/Resolved]
  - Tricuspid valve incompetence [Recovered/Resolved]
  - Toxicity to various agents [Recovered/Resolved]
  - Drug level increased [Recovered/Resolved]
  - Mitral valve incompetence [Recovered/Resolved]
  - Cardiac failure [Recovered/Resolved]
  - Hypertensive urgency [Recovered/Resolved]

NARRATIVE: CASE EVENT DATE: 2013
